FAERS Safety Report 25507648 (Version 5)
Quarter: 2025Q4

REPORT INFORMATION
  Report Type: Report from Study
  Country: GB (occurrence: GB)
  Receive Date: 20250703
  Receipt Date: 20251211
  Transmission Date: 20260117
  Serious: Yes (Other)
  Sender: TAKEDA
  Company Number: GB-TAKEDA-2025TUS060115

PATIENT
  Age: 64 Year
  Sex: Female

DRUGS (2)
  1. VEDOLIZUMAB [Suspect]
     Active Substance: VEDOLIZUMAB
     Indication: Colitis ulcerative
     Dosage: 108 MILLIGRAM, Q2WEEKS
     Dates: start: 20250626
  2. VEDOLIZUMAB [Suspect]
     Active Substance: VEDOLIZUMAB

REACTIONS (15)
  - Atrial fibrillation [Unknown]
  - Malaise [Unknown]
  - Pain [Unknown]
  - Sneezing [Unknown]
  - Productive cough [Unknown]
  - Hypersomnia [Unknown]
  - Rhinorrhoea [Unknown]
  - Erythema [Unknown]
  - Nasal congestion [Unknown]
  - Night sweats [Unknown]
  - Chills [Unknown]
  - Nasopharyngitis [Unknown]
  - Cough [Unknown]
  - Influenza [Unknown]
  - Pyrexia [Unknown]
